FAERS Safety Report 14400831 (Version 6)
Quarter: 2018Q2

REPORT INFORMATION
  Report Type: Report from Study
  Country: None (occurrence: US)
  Receive Date: 20180117
  Receipt Date: 20180511
  Transmission Date: 20180711
  Serious: Yes (Other)
  Sender: FDA-Public Use
  Company Number: US-ABBVIE-17K-163-2123220-00

PATIENT
  Age: 57 Year
  Sex: Female

DRUGS (4)
  1. HUMIRA [Suspect]
     Active Substance: ADALIMUMAB
     Indication: RHEUMATOID ARTHRITIS
     Route: 058
     Dates: start: 20170113, end: 201708
  2. HUMIRA [Suspect]
     Active Substance: ADALIMUMAB
     Route: 058
     Dates: start: 2018, end: 201802
  3. HUMIRA [Suspect]
     Active Substance: ADALIMUMAB
     Route: 058
     Dates: start: 20171001, end: 20171102
  4. HUMIRA [Suspect]
     Active Substance: ADALIMUMAB
     Route: 058
     Dates: start: 20180331, end: 20180428

REACTIONS (31)
  - Rheumatoid nodule [Recovered/Resolved]
  - Drug ineffective [Recovered/Resolved]
  - Rheumatoid arthritis [Recovering/Resolving]
  - Colectomy [Recovered/Resolved]
  - Myocardial infarction [Unknown]
  - Gait inability [Unknown]
  - Headache [Recovering/Resolving]
  - Hyperventilation [Unknown]
  - Vomiting [Recovered/Resolved]
  - Dizziness [Recovering/Resolving]
  - Electrocardiogram abnormal [Unknown]
  - Dizziness [Unknown]
  - Pollakiuria [Unknown]
  - Panic attack [Unknown]
  - Hypoaesthesia [Recovering/Resolving]
  - Pharyngitis streptococcal [Recovering/Resolving]
  - Sinus pain [Not Recovered/Not Resolved]
  - Diarrhoea [Recovering/Resolving]
  - Productive cough [Recovered/Resolved]
  - Influenza like illness [Recovered/Resolved]
  - Vomiting [Recovered/Resolved]
  - Arthralgia [Unknown]
  - Head discomfort [Not Recovered/Not Resolved]
  - Joint swelling [Unknown]
  - Pruritus [Unknown]
  - Muscle twitching [Unknown]
  - Bronchitis [Recovered/Resolved]
  - Arthralgia [Recovering/Resolving]
  - Vertigo positional [Unknown]
  - Nausea [Recovered/Resolved]
  - Back pain [Unknown]

NARRATIVE: CASE EVENT DATE: 2017
